FAERS Safety Report 22236107 (Version 1)
Quarter: 2023Q2

REPORT INFORMATION
  Report Type: Spontaneous
  Country: US (occurrence: US)
  Receive Date: 20230420
  Receipt Date: 20230420
  Transmission Date: 20230721
  Serious: Yes (Other)
  Sender: FDA-Public Use
  Company Number: US-TEVA-2023-US-2877725

PATIENT
  Age: 65 Year
  Sex: Male
  Weight: 65.77 kg

DRUGS (3)
  1. COPAXONE [Suspect]
     Active Substance: GLATIRAMER ACETATE
     Indication: Multiple sclerosis
     Dosage: 40MG/ML
     Route: 065
  2. avastatin calcium [Concomitant]
     Indication: Product used for unknown indication
     Route: 065
  3. AMLODIPINE BESYLATE\BENAZEPRIL HYDROCHLORIDE [Concomitant]
     Active Substance: AMLODIPINE BESYLATE\BENAZEPRIL HYDROCHLORIDE
     Indication: Product used for unknown indication
     Dosage: 5/10MG
     Route: 065

REACTIONS (5)
  - Spinal operation [Unknown]
  - Injection site pruritus [Unknown]
  - Feeling abnormal [Unknown]
  - Cough [Unknown]
  - Sinus disorder [Unknown]

NARRATIVE: CASE EVENT DATE: 20230410
